FAERS Safety Report 7208154-9 (Version None)
Quarter: 2011Q1

REPORT INFORMATION
  Report Type: 
  Country: None (occurrence: None)
  Receive Date: 20110104
  Receipt Date: 20101228
  Transmission Date: 20110831
  Serious: Yes (Other)
  Sender: FDA-Public Use
  Company Number: IL-BAYER-2010-007882

PATIENT
  Age: 32 Year
  Sex: Female

DRUGS (1)
  1. BETAFERON [Suspect]
     Indication: MULTIPLE SCLEROSIS
     Dosage: 250 A?G, UNK
     Dates: start: 20040101, end: 20101227

REACTIONS (2)
  - HAEMATOMA [None]
  - THROMBOCYTOPENIA [None]
